FAERS Safety Report 7269460-5 (Version None)
Quarter: 2011Q1

REPORT INFORMATION
  Report Type: 
  Country: None (occurrence: None)
  Receive Date: 20110124
  Receipt Date: 20110111
  Transmission Date: 20110831
  Serious: Yes (Hospitalization, Other)
  Sender: FDA-Public Use
  Company Number: 2011AC000004

PATIENT
  Age: 81 Year
  Sex: Male

DRUGS (18)
  1. LASIX [Concomitant]
  2. INSULIN [Concomitant]
  3. FLOMAX [Concomitant]
  4. PACERONE [Concomitant]
  5. GEMFIBROZIL [Concomitant]
  6. ALBUTEROL [Concomitant]
  7. ASPIRIN [Concomitant]
  8. CARDURA [Concomitant]
  9. VALSARTAN [Concomitant]
  10. DIGOXIN [Suspect]
     Dosage: 0.25 MG;QD;PO
     Route: 048
     Dates: start: 20080212
  11. PRAVASTATIN [Concomitant]
  12. OMEPRAZOLE [Concomitant]
  13. METOPROLOL [Concomitant]
  14. OXYGEN [Concomitant]
  15. DILTIAZEM [Concomitant]
  16. PROSCAR [Concomitant]
  17. GLYBURIDE [Concomitant]
  18. PULMICORT [Concomitant]

REACTIONS (17)
  - DEHYDRATION [None]
  - ASTHENIA [None]
  - NAUSEA [None]
  - CORNEAL STRIAE [None]
  - TOXICITY TO VARIOUS AGENTS [None]
  - RESPIRATORY FAILURE [None]
  - BLOOD UREA INCREASED [None]
  - NODAL ARRHYTHMIA [None]
  - DIZZINESS [None]
  - DYSPNOEA EXERTIONAL [None]
  - BLOOD CREATININE INCREASED [None]
  - HYPOTONIA [None]
  - BLINDNESS [None]
  - ATRIOVENTRICULAR BLOCK COMPLETE [None]
  - PNEUMONIA STAPHYLOCOCCAL [None]
  - BLADDER CANCER [None]
  - PLATELET COUNT DECREASED [None]
